FAERS Safety Report 6648334-4 (Version None)
Quarter: 2010Q1

REPORT INFORMATION
  Report Type: 
  Country: None (occurrence: None)
  Receive Date: 20100324
  Receipt Date: 20100317
  Transmission Date: 20100710
  Serious: Yes (Hospitalization, Other)
  Sender: FDA-Public Use
  Company Number: BR-BAYER-201010212LA

PATIENT
  Age: 39 Year
  Sex: Male

DRUGS (2)
  1. BETAFERON [Suspect]
     Indication: RELAPSING-REMITTING MULTIPLE SCLEROSIS
     Dosage: TOTAL DAILY DOSE: 9.6 MIU
     Route: 058
     Dates: start: 20090901
  2. ENALAPRIL MALEATE [Concomitant]
     Indication: HYPERTENSION
     Dosage: TOTAL DAILY DOSE: 1 DF
     Route: 048
     Dates: start: 20060101

REACTIONS (9)
  - DYSURIA [None]
  - INFLUENZA LIKE ILLNESS [None]
  - MONOPLEGIA [None]
  - MULTIPLE SCLEROSIS RELAPSE [None]
  - NASAL CONGESTION [None]
  - PAIN [None]
  - PYREXIA [None]
  - SUBCUTANEOUS NODULE [None]
  - URINARY TRACT INFECTION [None]
